FAERS Safety Report 18380629 (Version 1)
Quarter: 2020Q4

REPORT INFORMATION
  Report Type: Spontaneous
  Country: GB (occurrence: GB)
  Receive Date: 20201013
  Receipt Date: 20201013
  Transmission Date: 20210114
  Serious: Yes (Death)
  Sender: FDA-Public Use
  Company Number: GB-AUROBINDO-AUR-APL-2020-051714

PATIENT
  Age: 13 Day
  Sex: Male

DRUGS (2)
  1. CODEINE PHOSPHATE 30 MG  TABLETS [Suspect]
     Active Substance: CODEINE PHOSPHATE
     Indication: PRODUCT USED FOR UNKNOWN INDICATION
     Dosage: 30 MILLIGRAM (MATERNAL DOSE)
     Route: 063
  2. PARACETAMOL TABLET [Suspect]
     Active Substance: ACETAMINOPHEN
     Indication: PRODUCT USED FOR UNKNOWN INDICATION
     Dosage: 400 MILLIGRAM (MATERNAL DOSE)
     Route: 063

REACTIONS (5)
  - Drug level increased [Fatal]
  - Cyanosis [Fatal]
  - Contraindicated product administered [Fatal]
  - Poor feeding infant [Fatal]
  - Exposure via breast milk [Unknown]
